FAERS Safety Report 5589074-2 (Version None)
Quarter: 2007Q4

REPORT INFORMATION
  Report Type: 
  Country: None (occurrence: None)
  Receive Date: 20071212
  Receipt Date: 20070521
  Transmission Date: 20080405
  Serious: Yes (Other)
  Sender: FDA-Public Use
  Company Number: USA-2007-0027468

PATIENT
  Sex: Female

DRUGS (8)
  1. OXYCONTIN [Suspect]
     Indication: PAIN
     Dosage: SEE TEXT, ORAL
     Route: 048
     Dates: start: 20001228, end: 20050528
  2. FLUOCET [Concomitant]
  3. AMBIEN [Concomitant]
  4. NORCO [Concomitant]
  5. SOMA [Concomitant]
  6. DIAZEPAM [Concomitant]
  7. PHENOZIN [Concomitant]
  8. VALTREX [Concomitant]

REACTIONS (2)
  - DRUG ABUSE [None]
  - DRUG DEPENDENCE [None]
